FAERS Safety Report 8712757 (Version 3)
Quarter: 2012Q4

REPORT INFORMATION
  Report Type: 
  Country: US (occurrence: US)
  Receive Date: 20120808
  Receipt Date: 20121011
  Transmission Date: 20130627
  Serious: Yes (Hospitalization)
  Sender: FDA-Public Use
  Company Number: US-JNJFOC-20120800898

PATIENT
  Age: 63 Year
  Sex: Female
  Weight: 93.44 kg

DRUGS (11)
  1. EXTRA STRENGTH TYLENOL [Suspect]
     Indication: BACK PAIN
     Dosage: 500mg/caplet
     Route: 048
     Dates: start: 200904, end: 20091210
  2. METFORMIN [Concomitant]
     Indication: DIABETES MELLITUS
     Route: 065
     Dates: start: 2010
  3. TRIAVIL [Concomitant]
     Indication: PRODUCT USED FOR UNKNOWN INDICATION
     Dosage: 4-25mg
     Route: 065
     Dates: start: 1992
  4. MECLIZINE [Concomitant]
     Indication: VERTIGO
     Route: 065
     Dates: start: 2000
  5. GLIMEPIRIDE [Concomitant]
     Indication: VERTIGO
     Route: 065
     Dates: start: 1997
  6. LISINOPRIL [Concomitant]
     Indication: HYPERTENSION
     Route: 065
     Dates: start: 2010
  7. OMEPRAZOLE [Concomitant]
     Indication: GASTRIC DISORDER
     Route: 065
     Dates: start: 2009
  8. NADOLOL [Concomitant]
     Indication: ARRHYTHMIA PROPHYLAXIS
     Dosage: 1 1/2 pills 2 times a day
     Route: 065
     Dates: start: 2010
  9. SIMVASTATIN [Concomitant]
     Route: 065
     Dates: start: 2010
  10. CELEBREX [Concomitant]
  11. CHOLESTYRAMINE [Concomitant]

REACTIONS (8)
  - Gastric haemorrhage [Recovering/Resolving]
  - Hepatic cirrhosis [Recovering/Resolving]
  - Memory impairment [Recovered/Resolved]
  - Diarrhoea [Recovering/Resolving]
  - Intentional drug misuse [Unknown]
  - Abdominal tenderness [Recovering/Resolving]
  - Malaise [Recovering/Resolving]
  - Product quality issue [None]
